FAERS Safety Report 12449241 (Version 1)
Quarter: 2016Q2

REPORT INFORMATION
  Report Type: Spontaneous
  Country: US (occurrence: US)
  Receive Date: 20160608
  Receipt Date: 20160608
  Transmission Date: 20160815
  Serious: Yes (Hospitalization, Other)
  Sender: FDA-Public Use
  Company Number: US-PRESTIGE BRANDS -1053562

PATIENT
  Sex: Female

DRUGS (1)
  1. COMPOUND W [Suspect]
     Active Substance: SALICYLIC ACID
     Indication: SKIN PAPILLOMA
     Route: 061
     Dates: start: 20160510, end: 20160511

REACTIONS (4)
  - Skin exfoliation [Unknown]
  - Infection [Unknown]
  - Wound [Unknown]
  - Application site vesicles [Unknown]

NARRATIVE: CASE EVENT DATE: 20160511
